FAERS Safety Report 4459744-8 (Version None)
Quarter: 2004Q3

REPORT INFORMATION
  Report Type: 
  Country: None (occurrence: None)
  Receive Date: 20040928
  Receipt Date: 20030716
  Transmission Date: 20050211
  Serious: No
  Sender: FDA-Public Use
  Company Number: US-BRISTOL-MYERS SQUIBB COMPANY-12327904

PATIENT
  Age: 70 Year
  Sex: Female

DRUGS (6)
  1. KENALOG-40 [Suspect]
     Indication: MACULAR OEDEMA
     Route: 031
     Dates: start: 20030205, end: 20030702
  2. COMTREX [Concomitant]
  3. PREVACID [Concomitant]
  4. GLUCOSAMINE [Concomitant]
  5. ASPIRIN [Concomitant]
  6. OCUVITE [Concomitant]

REACTIONS (2)
  - EYE IRRITATION [None]
  - VITREOUS DISORDER [None]
